FAERS Safety Report 9943090 (Version 1)
Quarter: 2014Q1

REPORT INFORMATION
  Report Type: Spontaneous
  Country: US (occurrence: US)
  Receive Date: 20140303
  Receipt Date: 20140303
  Transmission Date: 20141002
  Serious: No
  Sender: FDA-Public Use
  Company Number: US-PFIZER INC-2014060737

PATIENT
  Age: 57 Year
  Sex: Male
  Weight: 99.77 kg

DRUGS (9)
  1. VENLAFAXINE HCL [Suspect]
     Indication: DEPRESSION
     Dosage: 37.5 MG, 1X/DAY
     Route: 048
     Dates: start: 20140216, end: 20140218
  2. VENLAFAXINE HCL [Suspect]
     Indication: ANXIETY
     Dosage: 75 MG, 1X/DAY
     Route: 048
     Dates: start: 20140219
  3. PRILOSEC [Concomitant]
     Indication: GASTROOESOPHAGEAL REFLUX DISEASE
     Dosage: 20 MG, UNK
  4. DIOVAN (VALSARTAN) [Concomitant]
     Indication: BLOOD PRESSURE ABNORMAL
     Dosage: 80 MG, UNK
  5. REMERON [Concomitant]
     Indication: DEPRESSION
     Dosage: (HALF TABLET OF 15MG), 1X/DAY
  6. BUSPAR [Concomitant]
     Indication: ANXIETY
     Dosage: 5 MG, 3X/DAY
  7. LAMICTAL [Concomitant]
     Indication: AFFECTIVE DISORDER
     Dosage: 50 MG, 1X/DAY ( TWO 25 MG TABLETS)
  8. TEMAZEPAM [Concomitant]
     Indication: SLEEP DISORDER
     Dosage: 60 MG, 1X/DAY (TWO TABLETS OF 30 MG)
  9. MELATONIN [Concomitant]
     Indication: SLEEP DISORDER
     Dosage: 10 MG, 1X/DAY (TWO 5 MG TABLETS)

REACTIONS (2)
  - Feeling abnormal [Recovered/Resolved]
  - Nervousness [Recovered/Resolved]
